FAERS Safety Report 9718281 (Version 1)
Quarter: 2013Q4

REPORT INFORMATION
  Report Type: Spontaneous
  Country: US (occurrence: US)
  Receive Date: 20131125
  Receipt Date: 20131125
  Transmission Date: 20140711
  Serious: No
  Sender: FDA-Public Use
  Company Number: US-VIVUS-2013V1000211

PATIENT
  Age: 46 Year
  Sex: Male
  Weight: 93.52 kg

DRUGS (2)
  1. QSYMIA 3.75MG/23MG [Suspect]
     Indication: WEIGHT DECREASED
     Dosage: DAILY DOSE: 1 CAPSULE,
     Route: 048
     Dates: start: 20130320, end: 20130320
  2. QSYMIA 7.5MG/46MG [Suspect]
     Indication: WEIGHT DECREASED
     Dosage: DAILY DOSE: 1 CAPSULE,
     Route: 048
     Dates: start: 20130319, end: 20130319

REACTIONS (2)
  - Somnolence [Not Recovered/Not Resolved]
  - Inappropriate schedule of drug administration [Recovered/Resolved]
